FAERS Safety Report 6192786-3 (Version None)
Quarter: 2009Q2

REPORT INFORMATION
  Report Type: 
  Country: None (occurrence: None)
  Receive Date: 20090518
  Receipt Date: 20090514
  Transmission Date: 20091009
  Serious: Yes (Hospitalization)
  Sender: FDA-Public Use
  Company Number: US-BRISTOL-MYERS SQUIBB COMPANY-14624332

PATIENT
  Age: 69 Year
  Sex: Male
  Weight: 82 kg

DRUGS (3)
  1. CARBOPLATIN [Suspect]
     Indication: NON-SMALL CELL LUNG CANCER
     Dosage: START DATE:09FEB09 AUC6
     Route: 042
     Dates: start: 20090413, end: 20090413
  2. TAXOL [Suspect]
     Indication: NON-SMALL CELL LUNG CANCER
     Dosage: START DATE:9FEB09 INITIATED ON 45MG/M2IV, INCREASED TO 200MG/M2
     Route: 042
     Dates: start: 20090413, end: 20090413
  3. RADIATION THERAPY [Suspect]
     Indication: NON-SMALL CELL LUNG CANCER
     Dosage: 1DF=6000GY NO OF FRACTIONS:30 ELAPSED DAYS:39 START DATE: 9FEB09
     Dates: start: 20090320, end: 20090320

REACTIONS (4)
  - DIARRHOEA [None]
  - DYSPHAGIA [None]
  - NEUTROPHIL COUNT DECREASED [None]
  - WHITE BLOOD CELL COUNT DECREASED [None]
